FAERS Safety Report 5312591-7 (Version None)
Quarter: 2007Q2

REPORT INFORMATION
  Report Type: 
  Country: None (occurrence: None)
  Receive Date: 20070430
  Receipt Date: 20070206
  Transmission Date: 20071010
  Serious: No
  Sender: FDA-Public Use
  Company Number: 2007UW02472

PATIENT
  Age: 4 Year
  Sex: Female
  Weight: 18.1 kg

DRUGS (4)
  1. NEXIUM [Suspect]
     Indication: GASTROOESOPHAGEAL REFLUX DISEASE
     Route: 048
  2. NEXIUM [Suspect]
     Route: 048
  3. ATROVENT [Concomitant]
     Route: 055
  4. OMNICEF [Concomitant]
     Dates: start: 20070205

REACTIONS (7)
  - BACK PAIN [None]
  - DYSURIA [None]
  - GASTRIC DISORDER [None]
  - POLLAKIURIA [None]
  - PROTEIN URINE PRESENT [None]
  - URINARY TRACT INFECTION [None]
  - URINE ODOUR ABNORMAL [None]
